FAERS Safety Report 10177935 (Version 1)
Quarter: 2014Q2

REPORT INFORMATION
  Report Type: Spontaneous
  Country: JP (occurrence: JP)
  Receive Date: 20140516
  Receipt Date: 20140516
  Transmission Date: 20141212
  Serious: Yes (Death)
  Sender: FDA-Public Use
  Company Number: PHJP2014JP000793

PATIENT
  Age: 76 Year
  Sex: Male

DRUGS (1)
  1. TEGRETOL TAB 200MG [Suspect]
     Dosage: 200 MG, DAILY
     Route: 048
     Dates: start: 201211

REACTIONS (2)
  - Cholestasis [Fatal]
  - Multi-organ failure [Fatal]
